FAERS Safety Report 15466100 (Version 2)
Quarter: 2020Q1

REPORT INFORMATION
  Report Type: Report from Study
  Country: CA (occurrence: CA)
  Receive Date: 20181004
  Receipt Date: 20200212
  Transmission Date: 20200409
  Serious: Yes (Other)
  Sender: FDA-Public Use
  Company Number: CA-GLAXOSMITHKLINE-CA2018GSK162806

PATIENT
  Sex: Female

DRUGS (7)
  1. VENTOLIN [Suspect]
     Active Substance: ALBUTEROL SULFATE
     Indication: PRODUCT USED FOR UNKNOWN INDICATION
     Dosage: UNK
  2. PULMICORT RESPULES [Suspect]
     Active Substance: BUDESONIDE
     Indication: PRODUCT USED FOR UNKNOWN INDICATION
     Dosage: UNK
  3. BREO ELLIPTA [Suspect]
     Active Substance: FLUTICASONE FUROATE\VILANTEROL TRIFENATATE
     Indication: ASTHMA
     Dosage: 1 PUFF(S), QD
     Route: 055
  4. SINUS RINSE [Suspect]
     Active Substance: SODIUM BICARBONATE\SODIUM CHLORIDE
     Indication: PRODUCT USED FOR UNKNOWN INDICATION
     Dosage: UNK
  5. FLUTICASONE PROPIONATE+SALMETEROL XINAFOATE [Suspect]
     Active Substance: FLUTICASONE PROPIONATE\SALMETEROL XINAFOATE
     Indication: ASTHMA
     Dosage: 1 PUFF(S), QD
  6. NUCALA [Suspect]
     Active Substance: MEPOLIZUMAB
     Indication: ASTHMA
     Dosage: 100 MG, Z; MONTHLY
     Route: 042
     Dates: start: 20170613
  7. PULMICORT RESPULES [Concomitant]
     Active Substance: BUDESONIDE
     Indication: PRODUCT USED FOR UNKNOWN INDICATION
     Dosage: UNK
     Route: 055

REACTIONS (26)
  - Nausea [Unknown]
  - Nasopharyngitis [Unknown]
  - Asthma [Recovered/Resolved]
  - Viral infection [Unknown]
  - Dyspnoea exertional [Recovering/Resolving]
  - Fatigue [Unknown]
  - Abdominal pain [Unknown]
  - Pleuritic pain [Recovering/Resolving]
  - Nasal congestion [Recovering/Resolving]
  - Wheezing [Unknown]
  - Rales [Unknown]
  - Disease recurrence [Unknown]
  - Cough [Unknown]
  - Skin discolouration [Unknown]
  - Bronchitis [Recovered/Resolved]
  - Obstructive airways disorder [Unknown]
  - Dyspnoea [Unknown]
  - Weight decreased [Unknown]
  - Sinusitis [Unknown]
  - Bacterial infection [Unknown]
  - Rhinitis [Unknown]
  - Eosinophilic granulomatosis with polyangiitis [Unknown]
  - Pain in extremity [Unknown]
  - Blood count abnormal [Unknown]
  - Condition aggravated [Unknown]
  - Sinus congestion [Unknown]
